FAERS Safety Report 4946329-X (Version None)
Quarter: 2006Q1

REPORT INFORMATION
  Report Type: 
  Country: None (occurrence: None)
  Receive Date: 20060316
  Receipt Date: 20060316
  Transmission Date: 20060701
  Serious: No
  Sender: FDA-Public Use
  Company Number: None

PATIENT
  Age: 79 Year
  Sex: Male
  Weight: 83.5 kg

DRUGS (25)
  1. SPIRONOLACTONE [Suspect]
  2. FORMOTEROL FUMARATE [Suspect]
  3. FUROSEMIDE INJ SOLN [Concomitant]
  4. ENOXAPARIN SODIUM [Concomitant]
  5. UROSEMIDE [Concomitant]
  6. INSULIN REG HUMAN NOVOLIN R [Concomitant]
  7. NITROFLYCERIN [Concomitant]
  8. METOPROLOL [Concomitant]
  9. LEVOTHYROXINE SODIUM [Concomitant]
  10. HYDRALAZINE [Concomitant]
  11. GEMFIBROZIL [Concomitant]
  12. DOXAZOSIN [Concomitant]
  13. CLOPIDOGREL BISULFATE [Concomitant]
  14. CITALOPRAM [Concomitant]
  15. CALCIUM CARBONATE [Concomitant]
  16. TORVASTATIN [Concomitant]
  17. SPIRIN [Concomitant]
  18. MIODARONE [Concomitant]
  19. ITROGLYCERIN [Concomitant]
  20. LORAZEPAM [Concomitant]
  21. ACETYLCYSTRINE [Concomitant]
  22. OMEPRAZOLE [Concomitant]
  23. IPRATROPIUM BROMIDE [Concomitant]
  24. ALBUTEROL [Concomitant]
  25. PREDNISONE TAB [Concomitant]

REACTIONS (1)
  - HYPERKALAEMIA [None]
